FAERS Safety Report 11094380 (Version 1)
Quarter: 2015Q2

REPORT INFORMATION
  Report Type: Spontaneous
  Country: US (occurrence: US)
  Receive Date: 20150506
  Receipt Date: 20150506
  Transmission Date: 20150821
  Serious: No
  Sender: FDA-Public Use
  Company Number: US-GLAXOSMITHKLINE-US2015GSK058321

PATIENT
  Sex: Female

DRUGS (19)
  1. HALOPERIDOL. [Concomitant]
     Active Substance: HALOPERIDOL
  2. LIPITOR [Concomitant]
     Active Substance: ATORVASTATIN CALCIUM
  3. ENOXAPARIN [Concomitant]
     Active Substance: ENOXAPARIN
  4. CLONAZEPAM. [Concomitant]
     Active Substance: CLONAZEPAM
  5. TYKERB [Suspect]
     Active Substance: LAPATINIB DITOSYLATE
     Indication: BREAST CANCER
     Dosage: 1250 MG, 1D
     Route: 048
     Dates: start: 20150305
  6. DIPHENOXYLATE [Concomitant]
     Active Substance: DIPHENOXYLATE
  7. DEXAMETHASONE. [Concomitant]
     Active Substance: DEXAMETHASONE
  8. ESCITALOPRAM [Concomitant]
     Active Substance: ESCITALOPRAM OXALATE
  9. FAMOTIDINE. [Concomitant]
     Active Substance: FAMOTIDINE
  10. ZOFRAN [Concomitant]
     Active Substance: ONDANSETRON HYDROCHLORIDE
  11. LEVETIRACETAM. [Concomitant]
     Active Substance: LEVETIRACETAM
  12. LORAZEPAM. [Concomitant]
     Active Substance: LORAZEPAM
  13. OXYCODONE [Concomitant]
     Active Substance: OXYCODONE
  14. PANTOPRAZOLE [Concomitant]
     Active Substance: PANTOPRAZOLE SODIUM
  15. RANITIDINE [Concomitant]
     Active Substance: RANITIDINE\RANITIDINE HYDROCHLORIDE
  16. CARAFATE [Concomitant]
     Active Substance: SUCRALFATE
  17. LOSARTAN [Concomitant]
     Active Substance: LOSARTAN
  18. PROCHLORPERAZINE. [Concomitant]
     Active Substance: PROCHLORPERAZINE
  19. CAPECITABINE. [Concomitant]
     Active Substance: CAPECITABINE

REACTIONS (1)
  - Drug intolerance [Not Recovered/Not Resolved]
